FAERS Safety Report 22300056 (Version 1)
Quarter: 2023Q2

REPORT INFORMATION
  Report Type: Spontaneous
  Country: VN (occurrence: VN)
  Receive Date: 20230509
  Receipt Date: 20230509
  Transmission Date: 20230721
  Serious: Yes (Other)
  Sender: FDA-Public Use
  Company Number: VN-GE HEALTHCARE-2023CSU002732

PATIENT
  Age: 64 Year
  Sex: Female
  Weight: 54 kg

DRUGS (2)
  1. OMNIPAQUE [Suspect]
     Active Substance: IOHEXOL
     Indication: Computerised tomogram
     Dosage: 75 ML, SINGLE
     Route: 042
     Dates: start: 20230215, end: 20230215
  2. OMNIPAQUE [Suspect]
     Active Substance: IOHEXOL
     Indication: Product used for unknown indication

REACTIONS (4)
  - Fatigue [Recovered/Resolved]
  - Urticaria [Recovered/Resolved]
  - Pruritus [Recovered/Resolved]
  - Vomiting [Recovered/Resolved]

NARRATIVE: CASE EVENT DATE: 20230215
